FAERS Safety Report 7126696-1 (Version None)
Quarter: 2010Q4

REPORT INFORMATION
  Report Type: 
  Country: None (occurrence: None)
  Receive Date: 20101129
  Receipt Date: 20101115
  Transmission Date: 20110411
  Serious: Yes (Hospitalization)
  Sender: FDA-Public Use
  Company Number: JP-ROCHE-726482

PATIENT
  Sex: Female

DRUGS (55)
  1. TOCILIZUMAB [Suspect]
     Indication: CASTLEMAN'S DISEASE
     Route: 041
     Dates: start: 20100727, end: 20100914
  2. TOCILIZUMAB [Suspect]
     Route: 041
     Dates: start: 20100922, end: 20101006
  3. TOCILIZUMAB [Suspect]
     Route: 041
     Dates: start: 20101104
  4. PREDNISOLONE [Suspect]
     Indication: CASTLEMAN'S DISEASE
     Route: 048
     Dates: start: 20100713, end: 20100722
  5. PREDNISOLONE [Suspect]
     Route: 048
     Dates: start: 20100824, end: 20100902
  6. PREDNISOLONE [Suspect]
     Route: 048
     Dates: start: 20100903, end: 20100909
  7. PREDNISOLONE [Suspect]
     Route: 048
     Dates: start: 20100910, end: 20101007
  8. PREDNISOLONE [Suspect]
     Route: 048
     Dates: start: 20101008
  9. PREDNISOLONE [Suspect]
     Route: 041
     Dates: start: 20100718, end: 20100721
  10. PREDNISOLONE [Suspect]
     Route: 041
     Dates: start: 20100724, end: 20100805
  11. PREDNISOLONE [Suspect]
     Route: 041
     Dates: start: 20100806, end: 20100810
  12. PREDNISOLONE [Suspect]
     Route: 041
     Dates: start: 20100811, end: 20100817
  13. PREDNISOLONE [Suspect]
     Route: 041
     Dates: start: 20100818, end: 20100824
  14. SOL-MELCORT [Suspect]
     Indication: CASTLEMAN'S DISEASE
     Dosage: ROUTE IV(NOS)
     Route: 042
     Dates: start: 20100721, end: 20100723
  15. ZYLORIC [Concomitant]
     Route: 048
     Dates: start: 20100714
  16. KALIMATE [Concomitant]
     Dosage: DOSE FORM REPORTED AS PERORAL AGENT
     Route: 048
     Dates: start: 20100714, end: 20100805
  17. MYCOSYST [Concomitant]
     Route: 048
     Dates: start: 20100713
  18. BACTRIM [Concomitant]
     Route: 048
     Dates: start: 20100713, end: 20100723
  19. BACTRIM [Concomitant]
     Route: 048
     Dates: start: 20100726
  20. PARIET [Concomitant]
     Route: 048
     Dates: start: 20100707
  21. OPSO [Concomitant]
     Dosage: DOSE FORM REPORTED AS PERORAL LIQUID PREPARATION
     Route: 048
     Dates: start: 20100716
  22. TIMOPTOL [Concomitant]
     Dosage: DOSING AMOUNT REPORTED AS 1GTT, FORM: EYE DROPS
     Route: 047
     Dates: start: 20100629
  23. ALBUMINAR [Concomitant]
     Dosage: ROUTE: INTRAVENOUS (NOT OTHERWISE SPECIFIED)
     Route: 042
     Dates: start: 20100715, end: 20100718
  24. ALBUMINAR [Concomitant]
     Route: 042
     Dates: start: 20100720, end: 20100720
  25. ALBUMINAR [Concomitant]
     Route: 042
     Dates: start: 20100722, end: 20100724
  26. ALBUMINAR [Concomitant]
     Route: 042
     Dates: start: 20100726, end: 20100726
  27. ALBUMINAR [Concomitant]
     Route: 042
     Dates: start: 20100920, end: 20100920
  28. ALBUMINAR [Concomitant]
     Route: 042
     Dates: start: 20100929, end: 20100929
  29. LAXOBERON [Concomitant]
     Dosage: DOSE FORM REPORTED AS PERORAL LIQUID PREPARATION
     Route: 048
     Dates: start: 20100801, end: 20100802
  30. CRAVIT [Concomitant]
     Route: 048
     Dates: start: 20100806, end: 20100806
  31. CRAVIT [Concomitant]
     Route: 048
     Dates: start: 20100808, end: 20100808
  32. CRAVIT [Concomitant]
     Route: 048
     Dates: start: 20100810, end: 20100815
  33. ALBUMIN TANNATE [Concomitant]
     Route: 048
     Dates: start: 20100806, end: 20100909
  34. LASIX [Concomitant]
     Dosage: ROUTE: IV(NOS)
     Route: 042
     Dates: start: 20100805, end: 20100805
  35. LASIX [Concomitant]
     Route: 042
     Dates: start: 20100806, end: 20100811
  36. LASIX [Concomitant]
     Route: 042
     Dates: start: 20100812, end: 20100812
  37. LASIX [Concomitant]
     Route: 042
     Dates: start: 20100813, end: 20100819
  38. LASIX [Concomitant]
     Route: 042
     Dates: start: 20100831, end: 20100907
  39. LASIX [Concomitant]
     Route: 042
     Dates: start: 20100908, end: 20100913
  40. LASIX [Concomitant]
     Route: 042
     Dates: start: 20100919, end: 20100919
  41. LASIX [Concomitant]
     Route: 042
     Dates: start: 20100921, end: 20101001
  42. WYPAX [Concomitant]
     Route: 048
     Dates: start: 20100812
  43. LENDORMIN [Concomitant]
     Route: 048
     Dates: start: 20100819
  44. RISPERDAL [Concomitant]
     Dates: start: 20100902, end: 20100902
  45. RISPERDAL [Concomitant]
     Dates: start: 20100903, end: 20100909
  46. RISPERDAL [Concomitant]
     Dates: start: 20100910
  47. ACYCLOVIR [Concomitant]
     Route: 048
     Dates: start: 20100910
  48. POSTERISAN [Concomitant]
     Dosage: PROPER QUANTI
     Route: 061
     Dates: start: 20100629
  49. LASIX [Concomitant]
     Route: 048
     Dates: start: 20101005, end: 20101005
  50. MAGMITT [Concomitant]
     Route: 048
     Dates: start: 20100921
  51. ALDACTONE [Concomitant]
     Dosage: DOSE FORM: PERORAL AGENT
     Route: 054
     Dates: start: 20101005
  52. PYRINAZIN [Concomitant]
     Route: 048
     Dates: start: 20101008, end: 20101016
  53. PYRINAZIN [Concomitant]
     Route: 048
     Dates: start: 20101016
  54. NOVAMIN [Concomitant]
     Route: 048
     Dates: start: 20101016
  55. DUROTEP [Concomitant]
     Dosage: DOSE FORM: TAPE, 2.1MG24.2MG
     Route: 062
     Dates: start: 20101010

REACTIONS (11)
  - ANAEMIA [None]
  - CALCIPHYLAXIS [None]
  - CEREBROVASCULAR DISORDER [None]
  - CYTOMEGALOVIRUS INFECTION [None]
  - GLAUCOMA [None]
  - HEPATOSPLENOMEGALY [None]
  - HYPERURICAEMIA [None]
  - NEUROLOGICAL SYMPTOM [None]
  - PERITONITIS [None]
  - PLATELET COUNT DECREASED [None]
  - PLEURISY [None]
